FAERS Safety Report 4872286-0 (Version None)
Quarter: 2005Q4

REPORT INFORMATION
  Report Type: 
  Country: None (occurrence: None)
  Receive Date: 20051201
  Receipt Date: 20050803
  Transmission Date: 20060501
  Serious: No
  Sender: FDA-Public Use
  Company Number: 2005PV000791

PATIENT
  Age: 46 Year
  Sex: Male
  Weight: 117.9352 kg

DRUGS (3)
  1. BYETTA [Suspect]
     Indication: DIABETES MELLITUS NON-INSULIN-DEPENDENT
     Dosage: 5 MCG;BID;SC
     Route: 058
     Dates: start: 20050801, end: 20050802
  2. METFORMIN [Concomitant]
  3. ASPIRIN [Concomitant]

REACTIONS (9)
  - BREATH ODOUR [None]
  - CHEST PAIN [None]
  - DIARRHOEA [None]
  - DIZZINESS [None]
  - ERUCTATION [None]
  - HEADACHE [None]
  - MALAISE [None]
  - NAUSEA [None]
  - VOMITING [None]
